FAERS Safety Report 4399649-4 (Version None)
Quarter: 2004Q3

REPORT INFORMATION
  Report Type: 
  Country: None (occurrence: None)
  Receive Date: 20040713
  Receipt Date: 20040629
  Transmission Date: 20050211
  Serious: Yes (Life-Threatening, Hospitalization, Other)
  Sender: FDA-Public Use
  Company Number: JP-JNJFOC-20040506907

PATIENT
  Age: 73 Year
  Sex: Male
  Weight: 50 kg

DRUGS (4)
  1. REMICADE [Suspect]
     Indication: RHEUMATOID ARTHRITIS
     Dosage: SEE IMAGE
     Route: 041
     Dates: start: 20040420, end: 20040420
  2. RHEUMATREX [Suspect]
     Indication: RHEUMATOID ARTHRITIS
     Dosage: 6 MG, IN 1 WEEK
     Dates: start: 20030908, end: 20040520
  3. INH (ISONIAZID) TABLETS [Concomitant]
  4. PREDNISOLONE [Concomitant]

REACTIONS (6)
  - ANOREXIA [None]
  - BLOOD BETA-D-GLUCAN INCREASED [None]
  - CARDIAC FAILURE [None]
  - DRUG INTERACTION [None]
  - LISTLESS [None]
  - PNEUMONIA [None]
